FAERS Safety Report 10554248 (Version 1)
Quarter: 2014Q4

REPORT INFORMATION
  Report Type: Spontaneous
  Country: US (occurrence: None)
  Receive Date: 20141028
  Receipt Date: 20141028
  Transmission Date: 20150529
  Serious: Yes (Other)
  Sender: FDA-Public Use
  Company Number: BR14-380-AE

PATIENT

DRUGS (1)
  1. BUPRENORPHINE/NALOXONE [Suspect]
     Active Substance: BUPRENORPHINE\NALOXONE
     Dosage: SUBLINGUAL

REACTIONS (45)
  - Drug diversion [None]
  - Asthenia [None]
  - Paraesthesia [None]
  - Abdominal discomfort [None]
  - Nausea [None]
  - Defaecation urgency [None]
  - Pain [None]
  - Shock [None]
  - Product taste abnormal [None]
  - Abnormal dreams [None]
  - Discomfort [None]
  - Feeling of body temperature change [None]
  - Constipation [None]
  - Vomiting [None]
  - Malaise [None]
  - Hypersensitivity [None]
  - Epilepsy [None]
  - Paranoia [None]
  - Anxiety [None]
  - Dependence [None]
  - Withdrawal syndrome [None]
  - Abdominal pain upper [None]
  - Seizure [None]
  - Cognitive disorder [None]
  - Eye disorder [None]
  - Muscle tightness [None]
  - Sedation [None]
  - Insomnia [None]
  - Libido decreased [None]
  - Abscess [None]
  - Skin sensitisation [None]
  - Vein disorder [None]
  - Drug abuse [None]
  - Drug tolerance [None]
  - Miosis [None]
  - Vision blurred [None]
  - Depression [None]
  - Mental impairment [None]
  - Drug dependence [None]
  - Drug ineffective [None]
  - Unevaluable event [None]
  - Delirium tremens [None]
  - Headache [None]
  - Daydreaming [None]
  - Suicide attempt [None]
